FAERS Safety Report 10067730 (Version 1)
Quarter: 2014Q2

REPORT INFORMATION
  Report Type: Spontaneous
  Country: US (occurrence: None)
  Receive Date: 20140407
  Receipt Date: 20140407
  Transmission Date: 20141212
  Serious: Yes (Hospitalization)
  Sender: FDA-Public Use
  Company Number: UTC-046295

PATIENT
  Age: 66 Year
  Sex: Female
  Weight: 78.47 kg

DRUGS (4)
  1. REMODULIN (2.5 MILLIGRAM/MILLILITERS, INJECTION FOR INFUSION (TREPROSTINIL SODIUM) [Suspect]
     Indication: PULMONARY ARTERIAL HYPERTENSION
     Dosage: 1 IN 1 MIN.
     Dates: start: 20081211
  2. REVATIO (SILDENAFIL) [Concomitant]
  3. REVATIO (SILDENAFIL) [Concomitant]
  4. WARFARIN (WARFARIN) [Concomitant]

REACTIONS (1)
  - Coronary arterial stent insertion [None]
